FAERS Safety Report 7225366-9 (Version None)
Quarter: 2011Q1

REPORT INFORMATION
  Report Type: 
  Country: None (occurrence: None)
  Receive Date: 20110113
  Receipt Date: 20110107
  Transmission Date: 20110831
  Serious: Yes (Hospitalization)
  Sender: FDA-Public Use
  Company Number: US-WATSON-2011-00320

PATIENT
  Sex: Female
  Weight: 63.039 kg

DRUGS (8)
  1. OXYCONTIN [Suspect]
     Indication: INTERVERTEBRAL DISC PROTRUSION
     Dosage: 2 TABLETS, BID, PRN
     Route: 048
     Dates: start: 20010101
  2. NORCO 10/325 (WATSON LABORATORIES) [Suspect]
     Indication: BREAKTHROUGH PAIN
     Dosage: Q 4 HRS PRN
     Route: 048
     Dates: start: 20030101
  3. HYDROCODONE BITARTRATE AND ACETAMINOPHEN [Suspect]
     Indication: BREAKTHROUGH PAIN
     Route: 048
  4. SYNTHROID [Concomitant]
     Indication: THYROID DISORDER
     Dosage: 75 MCG, DAILY
     Route: 048
  5. BACLOFEN [Concomitant]
     Indication: MUSCLE RELAXANT THERAPY
     Dosage: 10 MG, QHS
     Route: 048
  6. OXYCONTIN [Suspect]
     Indication: BACK PAIN
  7. DILANTIN [Concomitant]
     Indication: CONVULSION
     Dosage: 100 MG, TID
     Route: 048
  8. KEPPRA [Concomitant]
     Indication: CONVULSION
     Dosage: 2 1/2  TABLETS BID
     Route: 048

REACTIONS (4)
  - LOSS OF CONSCIOUSNESS [None]
  - ABDOMINAL PAIN UPPER [None]
  - OVERDOSE [None]
  - DRUG LEVEL INCREASED [None]
